FAERS Safety Report 7797584-2 (Version None)
Quarter: 2011Q4

REPORT INFORMATION
  Report Type: 
  Country: None (occurrence: None)
  Receive Date: 20111003
  Receipt Date: 20100914
  Transmission Date: 20120403
  Serious: No
  Sender: FDA-Public Use
  Company Number: AEUSA201000349

PATIENT
  Age: 31 Year
  Sex: Female
  Weight: 73.4827 kg

DRUGS (1)
  1. HYPERRHO [Suspect]
     Indication: PROPHYLAXIS AGAINST RH ISOIMMUNISATION
     Dosage: 1500 IU;IX;IM
     Route: 030
     Dates: start: 20100816, end: 20100816

REACTIONS (7)
  - SYRINGE ISSUE [None]
  - MATERNAL EXPOSURE DURING PREGNANCY [None]
  - NEEDLE ISSUE [None]
  - ACCIDENTAL EXPOSURE [None]
  - INCORRECT ROUTE OF DRUG ADMINISTRATION [None]
  - DEVICE MALFUNCTION [None]
  - PRODUCT QUALITY ISSUE [None]
